FAERS Safety Report 6110509-0 (Version None)
Quarter: 2009Q1

REPORT INFORMATION
  Report Type: 
  Country: None (occurrence: None)
  Receive Date: 20090310
  Receipt Date: 20090305
  Transmission Date: 20090719
  Serious: Yes (Other)
  Sender: FDA-Public Use
  Company Number: JP-ROXANE LABORATORIES, INC.-2009-RO-00208RO

PATIENT
  Age: 61 Year
  Sex: Female

DRUGS (6)
  1. LITHIUM CARBONATE [Suspect]
     Indication: MAJOR DEPRESSION
     Dosage: 600MG
  2. FLUVOXAMINE MALEATE [Suspect]
     Indication: MAJOR DEPRESSION
     Dosage: 150MG
  3. VALPROATE SODIUM [Suspect]
  4. CLONAZEPAM [Suspect]
  5. METHYLPREDNISOLONE 4MG TAB [Concomitant]
     Indication: ENCEPHALOPATHY
     Dosage: 1G
     Route: 042
  6. LEVOTHYROXINE SODIUM [Concomitant]
     Indication: HYPOTHYROIDISM
     Dosage: .125MG

REACTIONS (4)
  - ENCEPHALOPATHY [None]
  - GOITRE [None]
  - HYPOTHYROIDISM [None]
  - THYROIDITIS [None]
